FAERS Safety Report 6401396-1 (Version None)
Quarter: 2009Q4

REPORT INFORMATION
  Report Type: 
  Country: None (occurrence: None)
  Receive Date: 20091015
  Receipt Date: 20070315
  Transmission Date: 20100525
  Serious: Yes (Disabling)
  Sender: FDA-Public Use
  Company Number: US-ASTRAZENECA-2006UW11105

PATIENT
  Sex: Female
  Weight: 94.8 kg

DRUGS (14)
  1. SEROQUEL [Suspect]
     Dosage: 25-500 MG
     Route: 048
     Dates: start: 20000118
  2. BENADRYL [Concomitant]
     Dates: start: 19860326
  3. LASIX [Concomitant]
     Dates: start: 19930623
  4. ZOLOFT [Concomitant]
     Indication: PANIC DISORDER
     Dates: start: 19931007
  5. SYNTHROID [Concomitant]
     Dates: start: 19930607
  6. PREMARIN [Concomitant]
     Dates: start: 19940405
  7. COGENTIN [Concomitant]
     Dosage: 0.5-2 MG
     Dates: start: 19950127
  8. K-DUR [Concomitant]
     Dates: start: 19950222
  9. PROVENTIL-HFA [Concomitant]
     Dosage: 4 TIMEES A DAY
     Dates: start: 19970211
  10. PRILOSEC [Concomitant]
     Dates: start: 19981101
  11. ATIVAN [Concomitant]
     Dates: start: 19980826
  12. ORAP [Concomitant]
     Dates: start: 19990818
  13. CLOZAPINE [Concomitant]
     Dates: start: 19990203
  14. CLONAZEPAM [Concomitant]
     Dosage: 200-400 MG
     Dates: start: 20001204

REACTIONS (1)
  - ILL-DEFINED DISORDER [None]
